FAERS Safety Report 8461557-7 (Version None)
Quarter: 2012Q2

REPORT INFORMATION
  Report Type: 
  Country: None (occurrence: None)
  Receive Date: 20120618
  Receipt Date: 20120607
  Transmission Date: 20120825
  Serious: Yes (Hospitalization)
  Sender: FDA-Public Use
  Company Number: JP-007300

PATIENT
  Age: 72 Year
  Sex: Male
  Weight: 72.5 kg

DRUGS (3)
  1. NIFLAN [Concomitant]
  2. DEGARELIX [Suspect]
     Indication: PROSTATE CANCER
     Dosage: (240 MG TOTAL SUBCUTANEOUS), (360 MG 1X/3 MONTHS SUBCUTANEOUS)
     Route: 058
     Dates: start: 20110412, end: 20110412
  3. DEGARELIX [Suspect]
     Indication: PROSTATE CANCER
     Dosage: (240 MG TOTAL SUBCUTANEOUS), (360 MG 1X/3 MONTHS SUBCUTANEOUS)
     Route: 058
     Dates: start: 20110510

REACTIONS (3)
  - MACULAR HOLE [None]
  - CATARACT [None]
  - METAMORPHOPSIA [None]
